FAERS Safety Report 6825636-X (Version None)
Quarter: 2010Q3

REPORT INFORMATION
  Report Type: 
  Country: None (occurrence: None)
  Receive Date: 20100709
  Receipt Date: 20100301
  Transmission Date: 20110219
  Serious: Yes (Other)
  Sender: FDA-Public Use
  Company Number: US-ASTRAZENECA-2010SE31502

PATIENT
  Age: 60 Year
  Sex: Male
  Weight: 106.6 kg

DRUGS (13)
  1. SEROQUEL [Suspect]
     Route: 048
     Dates: start: 20030109
  2. LIPITOR [Concomitant]
     Route: 048
     Dates: start: 20030325
  3. EFFEXOR XR [Concomitant]
     Route: 048
     Dates: start: 20030127
  4. AMBIEN [Concomitant]
     Dates: start: 20030120
  5. CLONAZEPAM [Concomitant]
     Route: 048
     Dates: start: 20030103
  6. XENICAL [Concomitant]
     Route: 048
     Dates: start: 20030114
  7. CLARINEX [Concomitant]
     Route: 048
     Dates: start: 20030303
  8. DEXAMETHASONE [Concomitant]
     Route: 048
     Dates: start: 20030406
  9. NEURONTIN [Concomitant]
     Dates: start: 20040121
  10. ABILIFY [Concomitant]
     Dates: start: 20050621
  11. LISINOPRIL [Concomitant]
     Dates: start: 20050621
  12. CLARITIN [Concomitant]
     Dates: start: 20050621
  13. PRILOSEC [Concomitant]
     Dates: start: 20040331

REACTIONS (6)
  - BLOOD PRESSURE INCREASED [None]
  - ERECTILE DYSFUNCTION [None]
  - HEPATITIS B [None]
  - HYPERLIPIDAEMIA [None]
  - NEUROPATHY PERIPHERAL [None]
  - TYPE 2 DIABETES MELLITUS [None]
